FAERS Safety Report 13089248 (Version 2)
Quarter: 2017Q1

REPORT INFORMATION
  Report Type: Spontaneous
  Country: US (occurrence: US)
  Receive Date: 20170105
  Receipt Date: 20170214
  Transmission Date: 20170428
  Serious: Yes (Other)
  Sender: FDA-Public Use
  Company Number: US-ASTRAZENECA-2016SF38407

PATIENT
  Age: 737 Month
  Sex: Female
  Weight: 102.1 kg

DRUGS (9)
  1. BUPROPION XL [Concomitant]
     Active Substance: BUPROPION
     Indication: ANXIETY
     Route: 048
     Dates: start: 201611
  2. CRESTOR [Suspect]
     Active Substance: ROSUVASTATIN CALCIUM
     Indication: HYPERCHOLESTEROLAEMIA
     Route: 048
  3. ESCITALOPRAM [Concomitant]
     Active Substance: ESCITALOPRAM OXALATE
     Indication: ANXIETY
     Route: 048
     Dates: start: 201611
  4. BUPROPION XL [Concomitant]
     Active Substance: BUPROPION
     Indication: DEPRESSION
     Route: 048
     Dates: start: 201611
  5. LOSARTAN AND HYDROCHLOROTHIAZIDE [Concomitant]
     Active Substance: HYDROCHLOROTHIAZIDE\LOSARTAN POTASSIUM
     Indication: HYPERTENSION
     Dosage: 100/225 MG DAILY
     Route: 048
  6. HUMULIN INSULIN [Concomitant]
     Active Substance: INSULIN HUMAN
     Dates: start: 201602
  7. BYDUREON [Suspect]
     Active Substance: EXENATIDE
     Indication: TYPE 2 DIABETES MELLITUS
     Route: 058
     Dates: start: 201606
  8. ESCITALOPRAM [Concomitant]
     Active Substance: ESCITALOPRAM OXALATE
     Indication: DEPRESSION
     Route: 048
     Dates: start: 201611
  9. TRESIBA INSULIN [Concomitant]

REACTIONS (6)
  - Arthritis [Unknown]
  - Pain [Unknown]
  - Intentional device misuse [Unknown]
  - Spinal cord compression [Unknown]
  - Device issue [Unknown]
  - Nerve injury [Unknown]

NARRATIVE: CASE EVENT DATE: 201510
